FAERS Safety Report 14266814 (Version 7)
Quarter: 2018Q2

REPORT INFORMATION
  Report Type: Spontaneous
  Country: JP (occurrence: JP)
  Receive Date: 20171211
  Receipt Date: 20180509
  Transmission Date: 20180711
  Serious: Yes (Death, Life-Threatening, Hospitalization, Disabling, Other)
  Sender: FDA-Public Use
  Company Number: JP-009507513-1712JPN000199J

PATIENT
  Age: 82 Year
  Sex: Male
  Weight: 40 kg

DRUGS (5)
  1. KEYTRUDA [Suspect]
     Active Substance: PEMBROLIZUMAB
     Indication: LUNG ADENOCARCINOMA
     Dosage: 200 MG, Q3W
     Route: 041
     Dates: start: 20171107, end: 20171128
  2. PREDONINE [Concomitant]
     Active Substance: PREDNISOLONE
     Indication: DECREASED APPETITE
     Dosage: 20 MG, UNK
     Route: 048
     Dates: start: 20171116, end: 20171120
  3. ROZEREM [Concomitant]
     Active Substance: RAMELTEON
     Indication: INSOMNIA
     Dosage: UNK
     Route: 048
     Dates: start: 20170912, end: 20171201
  4. NEXIUM [Concomitant]
     Active Substance: ESOMEPRAZOLE MAGNESIUM
     Indication: GASTRIC DISORDER
     Dosage: UNK
     Route: 048
     Dates: start: 20171116, end: 20171120
  5. MAGMITT [Concomitant]
     Active Substance: MAGNESIUM OXIDE
     Indication: CONSTIPATION
     Dosage: UNK
     Route: 048
     Dates: start: 20170912, end: 20171201

REACTIONS (8)
  - Dizziness [Recovering/Resolving]
  - Dysphagia [Fatal]
  - Cerebral infarction [Recovering/Resolving]
  - Myasthenia gravis [Fatal]
  - Dysphonia [Unknown]
  - Nervous system disorder [Fatal]
  - Dyspnoea [Fatal]
  - Malaise [Unknown]

NARRATIVE: CASE EVENT DATE: 20171116
